FAERS Safety Report 6537709-X (Version None)
Quarter: 2010Q1

REPORT INFORMATION
  Report Type: 
  Country: None (occurrence: None)
  Receive Date: 20100114
  Receipt Date: 20100107
  Transmission Date: 20100710
  Serious: Yes (Other)
  Sender: FDA-Public Use
  Company Number: NL-JNJFOC-20100103168

PATIENT
  Sex: Female

DRUGS (1)
  1. REMICADE [Suspect]
     Indication: MUSCULOSKELETAL PAIN
     Dosage: TREATED WITH APPROXIMATELY 52 INFUSIONS
     Route: 042

REACTIONS (1)
  - BRAIN NEOPLASM MALIGNANT [None]
